FAERS Safety Report 5050502-2 (Version None)
Quarter: 2006Q3

REPORT INFORMATION
  Report Type: 
  Country: None (occurrence: None)
  Receive Date: 20060713
  Receipt Date: 20060602
  Transmission Date: 20061208
  Serious: Yes (Hospitalization)
  Sender: FDA-Public Use
  Company Number: US-ROCHE-450381

PATIENT
  Age: 52 Year
  Sex: Male
  Weight: 90.7 kg

DRUGS (2)
  1. PEG-INTERFERON A-2A (RO 25-8310) [Suspect]
     Route: 058
     Dates: start: 20050414, end: 20060311
  2. RIBAVIRIN [Suspect]
     Route: 048
     Dates: start: 20050414, end: 20060311

REACTIONS (2)
  - APPENDICITIS [None]
  - INCISION SITE ABSCESS [None]
